FAERS Safety Report 9171677 (Version 1)
Quarter: 2013Q1

REPORT INFORMATION
  Report Type: Spontaneous
  Country: US (occurrence: None)
  Receive Date: 20130313
  Receipt Date: 20130313
  Transmission Date: 20140127
  Serious: Yes (Other)
  Sender: FDA-Public Use
  Company Number: US-1196954

PATIENT
  Age: 80 Year
  Sex: Male
  Weight: 86.18 kg

DRUGS (9)
  1. AZOPT 1% [Suspect]
     Dosage: 1 GTT BID OU OPHTHALMIC
     Route: 050
     Dates: start: 20120324
  2. LUMIGAN [Concomitant]
  3. VESICARE [Concomitant]
  4. JANUVIA [Concomitant]
  5. PROTONIX [Concomitant]
  6. MULTIVITAMIN [Concomitant]
  7. CULTURELLE [Concomitant]
  8. LOPERAMIDE [Concomitant]
  9. ACIDOPHILUS [Concomitant]

REACTIONS (4)
  - Skin exfoliation [None]
  - Skin burning sensation [None]
  - Pain [None]
  - Seborrhoeic dermatitis [None]
